FAERS Safety Report 22936661 (Version 10)
Quarter: 2024Q2

REPORT INFORMATION
  Report Type: Spontaneous
  Country: US (occurrence: US)
  Receive Date: 20230912
  Receipt Date: 20240618
  Transmission Date: 20240716
  Serious: Yes (Hospitalization, Other)
  Sender: FDA-Public Use
  Company Number: US-PFIZER INC-PV202300146904

PATIENT
  Age: 82 Year
  Sex: Male

DRUGS (3)
  1. VYNDAMAX [Suspect]
     Active Substance: TAFAMIDIS
     Indication: Amyloidosis
     Dosage: 1 A DAY, EVERY DAY
     Dates: start: 2020
  2. VYNDAMAX [Suspect]
     Active Substance: TAFAMIDIS
     Indication: Pericardial effusion
  3. VYNDAMAX [Suspect]
     Active Substance: TAFAMIDIS
     Indication: Protein deficiency

REACTIONS (16)
  - Fall [Unknown]
  - Limb injury [Recovered/Resolved]
  - Lower limb fracture [Unknown]
  - Cardiac disorder [Unknown]
  - Choking [Unknown]
  - Dyspnoea [Unknown]
  - COVID-19 [Unknown]
  - Pulmonary oedema [Unknown]
  - Haemorrhage [Unknown]
  - Decubitus ulcer [Recovered/Resolved]
  - Weight decreased [Unknown]
  - Blood pressure decreased [Unknown]
  - Dysphagia [Unknown]
  - Arthritis [Unknown]
  - Dizziness [Unknown]
  - Gait disturbance [Unknown]

NARRATIVE: CASE EVENT DATE: 20230101
